FAERS Safety Report 20057246 (Version 1)
Quarter: 2021Q4

REPORT INFORMATION
  Report Type: Spontaneous
  Country: US (occurrence: None)
  Receive Date: 20211110
  Receipt Date: 20211110
  Transmission Date: 20220303
  Serious: No
  Sender: FDA-Public Use
  Company Number: None

PATIENT
  Age: 76 Year
  Sex: Male
  Weight: 72 kg

DRUGS (8)
  1. HIZENTRA [Suspect]
     Active Substance: HUMAN IMMUNOGLOBULIN G
     Indication: Immunodeficiency
     Dosage: OTHER QUANTITY : 1 INFUSION;?OTHER FREQUENCY : ONCE PER WEEK;?
     Route: 058
     Dates: start: 20171218
  2. METOPROLOL [Concomitant]
     Active Substance: METOPROLOL
  3. ATORVASTATIN [Concomitant]
     Active Substance: ATORVASTATIN
  4. VITAMIN C [Concomitant]
     Active Substance: ASCORBIC ACID
  5. VITAMINS [Concomitant]
     Active Substance: VITAMINS
  6. HERBALS\TURMERIC [Concomitant]
     Active Substance: HERBALS\TURMERIC
  7. LOW DOSE ASPIRIN [Concomitant]
     Active Substance: ASPIRIN
  8. HIZENTRA [Suspect]
     Active Substance: HUMAN IMMUNOGLOBULIN G
     Indication: Immunodeficiency
     Dosage: OTHER QUANTITY : 1 INFUSION;?OTHER FREQUENCY : ONCE PER WEEK;?
     Route: 058
     Dates: start: 20171218

REACTIONS (4)
  - Infusion site pain [None]
  - Infusion site irritation [None]
  - Infusion site pruritus [None]
  - Recalled product [None]

NARRATIVE: CASE EVENT DATE: 20211107
